FAERS Safety Report 18257878 (Version 1)
Quarter: 2020Q3

REPORT INFORMATION
  Report Type: Spontaneous
  Country: IL (occurrence: IL)
  Receive Date: 20200911
  Receipt Date: 20200911
  Transmission Date: 20201103
  Serious: Yes (Life-Threatening, Hospitalization, Other)
  Sender: FDA-Public Use
  Company Number: IL-NOVOPROD-751306

PATIENT
  Age: 16 Year
  Sex: Male

DRUGS (3)
  1. NORDITROPIN [Suspect]
     Active Substance: SOMATROPIN
     Indication: SHORT STATURE
     Dosage: UNK
     Route: 065
  2. NORDITROPIN [Suspect]
     Active Substance: SOMATROPIN
     Dosage: 4.3 MG, QD
     Route: 065
  3. NORDITROPIN [Suspect]
     Active Substance: SOMATROPIN
     Dosage: 3 MG, QD
     Route: 065

REACTIONS (2)
  - Hypertrophic cardiomyopathy [Unknown]
  - Ventricular fibrillation [Unknown]
